FAERS Safety Report 18518814 (Version 2)
Quarter: 2020Q4

REPORT INFORMATION
  Report Type: Report from Study
  Country: AR (occurrence: AR)
  Receive Date: 20201118
  Receipt Date: 20201130
  Transmission Date: 20210114
  Serious: Yes (Other)
  Sender: FDA-Public Use
  Company Number: AR-TAKEDA-AR202026003

PATIENT
  Sex: Female
  Weight: 89 kg

DRUGS (2)
  1. VELAGLUCERASE ALFA [Suspect]
     Active Substance: VELAGLUCERASE ALFA
     Dosage: 60 MILLIGRAM/KILOGRAM, 1X/2WKS
     Route: 042
  2. VELAGLUCERASE ALFA [Suspect]
     Active Substance: VELAGLUCERASE ALFA
     Indication: PRODUCT USED FOR UNKNOWN INDICATION
     Dosage: 60 MILLIGRAM/KILOGRAM, 1X/2WKS
     Route: 042

REACTIONS (4)
  - Biopsy [Unknown]
  - Injury [Recovering/Resolving]
  - Neck mass [Unknown]
  - Hand fracture [Recovering/Resolving]
